FAERS Safety Report 25806635 (Version 1)
Quarter: 2025Q3

REPORT INFORMATION
  Report Type: Spontaneous
  Country: US (occurrence: None)
  Receive Date: 20250915
  Receipt Date: 20250915
  Transmission Date: 20251020
  Serious: Yes (Other)
  Sender: FDA-CTU
  Company Number: None

PATIENT
  Age: 76 Year
  Sex: Female
  Weight: 72 kg

DRUGS (22)
  1. ASCENIV [Suspect]
     Active Substance: HUMAN IMMUNOGLOBULIN G
     Route: 042
     Dates: end: 20250814
  2. Albuterol 0.083% nebulizer solution [Concomitant]
     Dates: start: 20241211
  3. Norco 10-325 mg [Concomitant]
     Dates: start: 20250707, end: 20250805
  4. PREGABALIN [Concomitant]
     Active Substance: PREGABALIN
     Dates: start: 20250707, end: 20250805
  5. Ipratropium 0.03% nasal spray [Concomitant]
     Dates: start: 20240229
  6. MONTELUKAST SODIUM [Concomitant]
     Active Substance: MONTELUKAST SODIUM
     Dates: start: 20240229
  7. Metformin XR 750 mg [Concomitant]
     Dates: start: 20250724
  8. LISINOPRIL [Concomitant]
     Active Substance: LISINOPRIL
     Dates: start: 20250731
  9. Humulin 70/30 100 unit/mL injection [Concomitant]
     Dates: start: 20250520
  10. ROSUVASTATIN [Concomitant]
     Active Substance: ROSUVASTATIN
     Dates: start: 20241014
  11. TRAZODONE [Concomitant]
     Active Substance: TRAZODONE HYDROCHLORIDE
     Dates: start: 20240603
  12. CARVEDILOL [Concomitant]
     Active Substance: CARVEDILOL
     Dates: start: 20250129
  13. BUSPIRONE [Concomitant]
     Active Substance: BUSPIRONE HYDROCHLORIDE
     Dates: start: 20250204
  14. Vitamin B12 1000 mcg/mL [Concomitant]
     Dates: start: 20211022
  15. CLOPIDOGREL [Concomitant]
     Active Substance: CLOPIDOGREL BISULFATE
     Dates: start: 20250617
  16. ACETAMINOPHEN [Concomitant]
     Active Substance: ACETAMINOPHEN
  17. Breo Ellipta 100-25 mcg [Concomitant]
     Dates: start: 20250224
  18. Albuterol HFA 108 mcg [Concomitant]
     Dates: start: 20241015
  19. FUROSEMIDE [Concomitant]
     Active Substance: FUROSEMIDE
     Dates: start: 20230522
  20. DULOXETINE [Concomitant]
     Active Substance: DULOXETINE
     Dates: start: 20240702
  21. CYCLOBENZAPRINE HYDROCHLORIDE [Concomitant]
     Active Substance: CYCLOBENZAPRINE HYDROCHLORIDE
     Dates: start: 20250604
  22. EZETIMIBE [Concomitant]
     Active Substance: EZETIMIBE
     Dates: start: 20240702

REACTIONS (4)
  - Infusion related reaction [None]
  - Urticaria [None]
  - Pruritus [None]
  - Erythema [None]

NARRATIVE: CASE EVENT DATE: 20250814
